FAERS Safety Report 11856639 (Version 1)
Quarter: 2015Q4

REPORT INFORMATION
  Report Type: Not Available
  Country: US (occurrence: US)
  Receive Date: 20151221
  Receipt Date: 20151221
  Transmission Date: 20160305
  Serious: Yes (Hospitalization)
  Sender: FDA-Public Use
  Company Number: US-ANIPHARMA-2015-US-000965

PATIENT
  Age: 78 Year
  Sex: Male
  Weight: 92.53 kg

DRUGS (11)
  1. CEFEPIME [Suspect]
     Active Substance: CEFEPIME HYDROCHLORIDE
     Dates: end: 20150518
  2. CARDURA [Concomitant]
     Active Substance: DOXAZOSIN MESYLATE
  3. MAGNESIUM OXIDE. [Concomitant]
     Active Substance: MAGNESIUM OXIDE
  4. LIPITOR [Concomitant]
     Active Substance: ATORVASTATIN CALCIUM
  5. COLCHICINE. [Concomitant]
     Active Substance: COLCHICINE
  6. ALLOPURINOL. [Concomitant]
     Active Substance: ALLOPURINOL
  7. PAXIL [Concomitant]
     Active Substance: PAROXETINE HYDROCHLORIDE
  8. NEXIUM [Concomitant]
     Active Substance: ESOMEPRAZOLE MAGNESIUM
  9. ASPIRIN. [Concomitant]
     Active Substance: ASPIRIN
  10. COREG [Concomitant]
     Active Substance: CARVEDILOL
  11. VANCOMYCIN HYDROCHLORIDE (NON-SPECIFIC) [Suspect]
     Active Substance: VANCOMYCIN HYDROCHLORIDE
     Dosage: 1 CAPSULE EVERY 6 HOURS
     Route: 048
     Dates: start: 20150326

REACTIONS (16)
  - Somnolence [Recovered/Resolved]
  - Disease recurrence [None]
  - Decreased appetite [Recovered/Resolved]
  - Chills [Recovered/Resolved]
  - Confusional state [Recovered/Resolved]
  - Back pain [None]
  - Clostridium difficile infection [None]
  - Muscular weakness [Recovered/Resolved]
  - Polydipsia [Recovered/Resolved]
  - Dialysis [None]
  - Pruritus [Recovered/Resolved]
  - Dizziness [Recovered/Resolved]
  - Dyspnoea [Recovered/Resolved]
  - Pain [Recovered/Resolved]
  - Renal failure [Recovered/Resolved]
  - Thirst [None]
